FAERS Safety Report 11499234 (Version 2)
Quarter: 2015Q3

REPORT INFORMATION
  Report Type: Spontaneous
  Country: US (occurrence: US)
  Receive Date: 20150913
  Receipt Date: 20150914
  Transmission Date: 20151125
  Serious: No
  Sender: FDA-Public Use
  Company Number: US-TEVA-592965USA

PATIENT
  Age: 73 Year
  Sex: Female
  Weight: 79.45 kg

DRUGS (3)
  1. ATORVASTATIN [Concomitant]
     Active Substance: ATORVASTATIN
     Indication: BLOOD CHOLESTEROL INCREASED
  2. NUVIGIL [Suspect]
     Active Substance: ARMODAFINIL
     Dosage: 200 MILLIGRAM DAILY;
     Route: 065
     Dates: start: 20150909
  3. NUVIGIL [Suspect]
     Active Substance: ARMODAFINIL
     Indication: SLEEP DISORDER
     Dosage: 100 MILLIGRAM DAILY;
     Route: 065
     Dates: start: 201507, end: 20150909

REACTIONS (5)
  - Dyspnoea [Unknown]
  - Nausea [Unknown]
  - Somnolence [Not Recovered/Not Resolved]
  - Hallucination [Recovered/Resolved]
  - Anxiety [Unknown]

NARRATIVE: CASE EVENT DATE: 20150905
